FAERS Safety Report 14132861 (Version 1)
Quarter: 2017Q4

REPORT INFORMATION
  Report Type: Spontaneous
  Country: US (occurrence: US)
  Receive Date: 20171027
  Receipt Date: 20171027
  Transmission Date: 20180321
  Serious: No
  Sender: FDA-Public Use
  Company Number: US-BIOGEN-2017BI00476218

PATIENT
  Sex: Male

DRUGS (1)
  1. PLEGRIDY [Suspect]
     Active Substance: PEGINTERFERON BETA-1A
     Indication: MULTIPLE SCLEROSIS
     Route: 065
     Dates: start: 20170922

REACTIONS (11)
  - Vomiting [Unknown]
  - Injection site dryness [Unknown]
  - Chills [Unknown]
  - Headache [Unknown]
  - Diarrhoea [Unknown]
  - Abdominal pain upper [Unknown]
  - Injection site swelling [Unknown]
  - Cold sweat [Unknown]
  - Injection site pain [Unknown]
  - Injection site pruritus [Unknown]
  - Pain [Unknown]
